FAERS Safety Report 6087165-3 (Version None)
Quarter: 2009Q1

REPORT INFORMATION
  Report Type: 
  Country: None (occurrence: None)
  Receive Date: 20090223
  Receipt Date: 20090209
  Transmission Date: 20090719
  Serious: Yes (Hospitalization)
  Sender: FDA-Public Use
  Company Number: GB-PFIZER INC-2009167644

PATIENT

DRUGS (4)
  1. ETHOSUXIMIDE [Suspect]
  2. CLOBAZAM [Interacting]
  3. LAMOTRIGINE [Interacting]
  4. VALPROIC ACID [Interacting]

REACTIONS (6)
  - ANGIOEDEMA [None]
  - BLISTER [None]
  - COMA [None]
  - DRUG INTERACTION [None]
  - ERYTHEMA [None]
  - SWEAT GLAND DISORDER [None]
